FAERS Safety Report 9636768 (Version 2)
Quarter: 2013Q4

REPORT INFORMATION
  Report Type: Spontaneous
  Country: DE (occurrence: DE)
  Receive Date: 20131022
  Receipt Date: 20131105
  Transmission Date: 20140711
  Serious: Yes (Other)
  Sender: FDA-Public Use
  Company Number: PHHY2013DE114407

PATIENT
  Sex: Male

DRUGS (5)
  1. DIOVAN PROTECT [Suspect]
     Dosage: 160 MG, UNK
  2. KALINOR RETARD [Interacting]
  3. TORASEMIDE [Interacting]
     Dosage: 10 MG, UNK
  4. BISOPROLOL [Interacting]
     Dosage: 5 MG, UNK
  5. SPIRONOLACTON [Interacting]
     Dosage: 50 MG, UNK

REACTIONS (5)
  - Drug interaction [Unknown]
  - Flatulence [Not Recovered/Not Resolved]
  - Pain [Unknown]
  - Cold sweat [Not Recovered/Not Resolved]
  - Weight increased [Unknown]
